FAERS Safety Report 6549314-X (Version None)
Quarter: 2010Q1

REPORT INFORMATION
  Report Type: 
  Country: None (occurrence: None)
  Receive Date: 20100125
  Receipt Date: 20100111
  Transmission Date: 20100710
  Serious: Yes (Life-Threatening, Other)
  Sender: FDA-Public Use
  Company Number: PHHY2010ZA01328

PATIENT

DRUGS (10)
  1. GLEEVEC [Suspect]
     Indication: CHRONIC MYELOID LEUKAEMIA
     Dosage: 400 MG DAILY
     Route: 048
     Dates: start: 20070615
  2. GLEEVEC [Interacting]
     Dosage: NO TREATMENT
     Dates: start: 20070831, end: 20070921
  3. GLEEVEC [Interacting]
     Dosage: UNK
  4. SIMVASTATIN [Interacting]
     Dosage: 20 MG, UNK
     Dates: start: 20090201, end: 20091001
  5. SIMVASTATIN [Interacting]
     Dosage: 20 MG, UNK
     Dates: start: 20091001
  6. NORVASC [Interacting]
     Indication: HYPERTENSION
     Dosage: UNK
     Dates: start: 20091001
  7. MICARDIS [Concomitant]
     Dosage: 80 MG, UNK
     Dates: start: 20090201
  8. LISINOPRIL [Concomitant]
     Dosage: 5 MG, UNK
     Dates: start: 20090201
  9. LANTUS [Concomitant]
     Dosage: 46 UNITS
  10. LANTUS [Concomitant]
     Dosage: 32 UNITS

REACTIONS (7)
  - BLOOD GLUCOSE DECREASED [None]
  - DIARRHOEA [None]
  - DRUG INTERACTION [None]
  - HYPERTENSION [None]
  - IRIS HAEMORRHAGE [None]
  - MUSCLE SPASMS [None]
  - RETINAL HAEMORRHAGE [None]
